FAERS Safety Report 5357561-8 (Version None)
Quarter: 2007Q2

REPORT INFORMATION
  Report Type: 
  Country: None (occurrence: None)
  Receive Date: 20070614
  Receipt Date: 20070605
  Transmission Date: 20071010
  Serious: Yes (Death)
  Sender: FDA-Public Use
  Company Number: US-PFIZER INC-2007045742

PATIENT
  Sex: Female

DRUGS (2)
  1. ALPRAZOLAM [Suspect]
  2. CITALOPRAM HYDROBROMIDE [Suspect]

REACTIONS (1)
  - DEATH [None]
